FAERS Safety Report 23717024 (Version 3)
Quarter: 2025Q1

REPORT INFORMATION
  Report Type: Report from Study
  Country: CA (occurrence: CA)
  Receive Date: 20240408
  Receipt Date: 20250306
  Transmission Date: 20250409
  Serious: Yes (Hospitalization, Other)
  Sender: AMGEN
  Company Number: CA-002147023-NVSC2023CA010703

PATIENT
  Sex: Female

DRUGS (1)
  1. AIMOVIG [Suspect]
     Active Substance: ERENUMAB-AOOE
     Indication: Migraine
     Route: 065
     Dates: start: 20210326

REACTIONS (4)
  - Staphylococcal infection [Unknown]
  - Rheumatoid arthritis [Unknown]
  - Wound [Unknown]
  - Migraine [Not Recovered/Not Resolved]
